FAERS Safety Report 5055768-0 (Version None)
Quarter: 2006Q3

REPORT INFORMATION
  Report Type: 
  Country: None (occurrence: None)
  Receive Date: 20060714
  Receipt Date: 20060705
  Transmission Date: 20061208
  Serious: Yes (Hospitalization, Other)
  Sender: FDA-Public Use
  Company Number: T200600535

PATIENT
  Age: 56 Year
  Sex: Male
  Weight: 63.5 kg

DRUGS (6)
  1. ULTRA-TECHNEKOW DTE (TECHNETIUM TC 99M GENERATOR) [Suspect]
     Indication: MULTIPLE GATED ACQUISITION SCAN
     Dosage: SINGLE, INTRAVENOUS
     Route: 042
     Dates: start: 20051115, end: 20051115
  2. PROPRANOLOL [Concomitant]
  3. NEXIUM [Concomitant]
  4. PLAVIX [Concomitant]
  5. GLUCOTROL [Concomitant]
  6. ASPIRIN TAB [Concomitant]

REACTIONS (23)
  - BACTERIAL INFECTION [None]
  - BLEPHARITIS [None]
  - CHEST DISCOMFORT [None]
  - CHEST PAIN [None]
  - CHILLS [None]
  - DIABETIC RETINOPATHY [None]
  - EAR DISCOMFORT [None]
  - EAR HAEMORRHAGE [None]
  - EAR INFECTION [None]
  - EYE INFECTION [None]
  - EYE SWELLING [None]
  - EYELID OEDEMA [None]
  - FURUNCLE [None]
  - INJECTION SITE REACTION [None]
  - MALAISE [None]
  - NAUSEA [None]
  - PAIN IN EXTREMITY [None]
  - PHARYNGOLARYNGEAL PAIN [None]
  - PYREXIA [None]
  - RETINAL ANEURYSM [None]
  - SKIN INFECTION [None]
  - VISION BLURRED [None]
  - VISUAL ACUITY REDUCED [None]
